FAERS Safety Report 16266253 (Version 1)
Quarter: 2019Q2

REPORT INFORMATION
  Report Type: Report from Study
  Country: IT (occurrence: IT)
  Receive Date: 20190502
  Receipt Date: 20190502
  Transmission Date: 20190711
  Serious: Yes (Hospitalization)
  Sender: FDA-Public Use
  Company Number: IT-TEVA-2019-IT-1043524

PATIENT
  Age: 80 Year
  Sex: Female

DRUGS (2)
  1. DABIGATRAN ETEXILATE MESILATE [Concomitant]
     Active Substance: DABIGATRAN ETEXILATE MESYLATE
     Indication: ATRIAL FIBRILLATION
     Route: 048
  2. PROPAFENONE. [Suspect]
     Active Substance: PROPAFENONE
     Indication: PRODUCT ADMINISTRATION ERROR
     Route: 048
     Dates: start: 20181228, end: 20190101

REACTIONS (7)
  - Tremor [Recovered/Resolved]
  - Hypotension [Recovered/Resolved]
  - Fall [Recovered/Resolved]
  - Balance disorder [Recovered/Resolved]
  - Overdose [Recovered/Resolved]
  - Chest pain [Recovered/Resolved]
  - Medication error [Recovered/Resolved]

NARRATIVE: CASE EVENT DATE: 20190102
